FAERS Safety Report 5159852-2 (Version None)
Quarter: 2006Q4

REPORT INFORMATION
  Report Type: 
  Country: None (occurrence: None)
  Receive Date: 20061129
  Receipt Date: 20060220
  Transmission Date: 20070319
  Serious: Yes (Hospitalization)
  Sender: FDA-Public Use
  Company Number: US-GLAXOSMITHKLINE-A0594391A

PATIENT
  Age: 89 Year
  Sex: Female

DRUGS (2)
  1. WELLBUTRIN SR [Suspect]
     Indication: DEPRESSION
     Dosage: 150MG PER DAY
     Route: 048
     Dates: start: 20050901
  2. CYTOMEL [Concomitant]

REACTIONS (4)
  - ANXIETY [None]
  - BLOOD PRESSURE DECREASED [None]
  - DEPRESSION [None]
  - DRUG INEFFECTIVE [None]
